FAERS Safety Report 23693821 (Version 1)
Quarter: 2024Q2

REPORT INFORMATION
  Report Type: Spontaneous
  Country: US (occurrence: US)
  Receive Date: 20240401
  Receipt Date: 20240401
  Transmission Date: 20240716
  Serious: No
  Sender: FDA-Public Use
  Company Number: US-Evolus, Inc.-2024EV000031

PATIENT
  Sex: Female

DRUGS (3)
  1. JEUVEAU [Suspect]
     Active Substance: PRABOTULINUMTOXINA-XVFS
     Indication: Product use in unapproved indication
     Dosage: ORBICULARIS ORIS - 2 UNITS AT FOUR INJECTION SITES ABOVE THE LIP AT THE VERMILLION BORDER
     Dates: start: 20240105, end: 20240105
  2. JEUVEAU [Suspect]
     Active Substance: PRABOTULINUMTOXINA-XVFS
     Indication: Skin wrinkling
     Dosage: GLABELLA 8 UNITS, CROW^S FEET 6 UNITS ON LEFT, 6 UNITS ON RIGHT
     Dates: start: 20231204, end: 20231204
  3. JEUVEAU [Suspect]
     Active Substance: PRABOTULINUMTOXINA-XVFS
     Indication: Skin wrinkling

REACTIONS (3)
  - Injection site swelling [Recovered/Resolved]
  - Off label use [Unknown]
  - Drug effect less than expected [Recovered/Resolved]

NARRATIVE: CASE EVENT DATE: 20231201
